FAERS Safety Report 6035273-5 (Version None)
Quarter: 2009Q1

REPORT INFORMATION
  Report Type: 
  Country: None (occurrence: None)
  Receive Date: 20090109
  Receipt Date: 20090105
  Transmission Date: 20090719
  Serious: Yes (Other)
  Sender: FDA-Public Use
  Company Number: 2009SP000363

PATIENT
  Age: 23 Year
  Sex: Female

DRUGS (1)
  1. CORICIDIN                         (ACTIVES UNKNOWN) [Suspect]
     Indication: DRUG ABUSE
     Dosage: PO
     Route: 048

REACTIONS (8)
  - ACTIVITIES OF DAILY LIVING IMPAIRED [None]
  - AGGRESSION [None]
  - DISTURBANCE IN ATTENTION [None]
  - DRUG DEPENDENCE [None]
  - IRRITABILITY [None]
  - MEMORY IMPAIRMENT [None]
  - PHYSICAL ABUSE [None]
  - VERBAL ABUSE [None]
